FAERS Safety Report 21288368 (Version 1)
Quarter: 2022Q3

REPORT INFORMATION
  Report Type: Spontaneous
  Country: US (occurrence: US)
  Receive Date: 20220902
  Receipt Date: 20220902
  Transmission Date: 20221026
  Serious: No
  Sender: FDA-Public Use
  Company Number: US-ABBVIE-22K-163-4450514-00

PATIENT
  Sex: Male

DRUGS (2)
  1. CREON [Suspect]
     Active Substance: PANCRELIPASE AMYLASE\PANCRELIPASE LIPASE\PANCRELIPASE PROTEASE
     Indication: Pancreatectomy
     Dosage: 24,000 UNITS?2 CAP. WITH MEALS AND 1 CAP. WITH SNACKS
     Route: 048
     Dates: start: 202205, end: 2022
  2. CREON [Suspect]
     Active Substance: PANCRELIPASE AMYLASE\PANCRELIPASE LIPASE\PANCRELIPASE PROTEASE
     Dosage: 36,000 UNIT?2 CAP. WITH MEALS AND 1 CAP. WITH SNACKS
     Route: 048
     Dates: start: 2022

REACTIONS (5)
  - Faeces pale [Unknown]
  - Abdominal distension [Unknown]
  - Abdominal pain upper [Not Recovered/Not Resolved]
  - Diarrhoea [Not Recovered/Not Resolved]
  - Adverse drug reaction [Unknown]

NARRATIVE: CASE EVENT DATE: 20220101
